FAERS Safety Report 24443705 (Version 2)
Quarter: 2024Q4

REPORT INFORMATION
  Report Type: Report from Study
  Country: CA (occurrence: CA)
  Receive Date: 20241016
  Receipt Date: 20241017
  Transmission Date: 20250115
  Serious: No
  Sender: ROCHE
  Company Number: CA-ROCHE-1867342

PATIENT
  Age: 56 Year
  Sex: Female

DRUGS (22)
  1. RITUXAN [Suspect]
     Active Substance: RITUXIMAB
     Indication: Microscopic polyangiitis
     Route: 042
     Dates: start: 1999
  2. RITUXAN [Suspect]
     Active Substance: RITUXIMAB
     Indication: Rheumatoid arthritis
     Dosage: 1ST RPAP DOSE?ON 03/JAN/2017, SHE RECEIVED THE MOST RECENT DOSE? FREQUENCY TEXT:DAY 1,15, FIRST RPAP
     Route: 042
     Dates: start: 20161212, end: 20170103
  3. RITUXAN [Suspect]
     Active Substance: RITUXIMAB
     Route: 042
     Dates: start: 2017
  4. RITUXAN [Suspect]
     Active Substance: RITUXIMAB
     Dosage: ON 11/JUL/2017, SHE RECEIVED THE MOST RECENT DOSE? FREQUENCY TEXT:SINGLE DOSE
     Route: 042
     Dates: start: 20170711, end: 20170711
  5. RITUXAN [Suspect]
     Active Substance: RITUXIMAB
     Dosage: ON 28/FEB/2022, SHE RECEIVED THE MOST RECENT DOSE? FREQUENCY TEXT:SINGLE INFUSIONS (DAY 1 ONLY)
     Route: 042
     Dates: start: 20180116, end: 20220228
  6. RITUXAN [Suspect]
     Active Substance: RITUXIMAB
     Route: 042
     Dates: start: 20220923, end: 20221006
  7. RITUXAN [Suspect]
     Active Substance: RITUXIMAB
     Dosage: FREQUENCY TEXT:SINGLE INFUSIONS
     Route: 042
     Dates: start: 20230314, end: 20230314
  8. RITUXAN [Suspect]
     Active Substance: RITUXIMAB
     Route: 042
  9. RITUXAN [Suspect]
     Active Substance: RITUXIMAB
     Route: 042
  10. RITUXAN [Suspect]
     Active Substance: RITUXIMAB
     Route: 042
  11. FEBUXOSTAT [Concomitant]
     Active Substance: FEBUXOSTAT
  12. PREDNISONE [Concomitant]
     Active Substance: PREDNISONE
     Indication: Product used for unknown indication
  13. MYCOPHENOLATE MOFETIL [Concomitant]
     Active Substance: MYCOPHENOLATE MOFETIL
  14. CHLOROQUINE [Concomitant]
     Active Substance: CHLOROQUINE
     Dosage: PRN
  15. TYLENOL [Concomitant]
     Active Substance: ACETAMINOPHEN
     Indication: Premedication
     Route: 048
  16. TYLENOL [Concomitant]
     Active Substance: ACETAMINOPHEN
     Route: 048
  17. BENADRYL [Concomitant]
     Active Substance: DIPHENHYDRAMINE HYDROCHLORIDE
     Indication: Premedication
     Route: 048
  18. SOLU-MEDROL [Concomitant]
     Active Substance: METHYLPREDNISOLONE SODIUM SUCCINATE
     Indication: Premedication
     Route: 042
  19. ATORVASTATIN [Concomitant]
     Active Substance: ATORVASTATIN
     Indication: Product used for unknown indication
  20. VALSARTAN [Concomitant]
     Active Substance: VALSARTAN
     Indication: Product used for unknown indication
  21. AMLODIPINE [Concomitant]
     Active Substance: AMLODIPINE BESYLATE
     Indication: Product used for unknown indication
  22. CALCIUM [Concomitant]
     Active Substance: CALCIUM
     Indication: Product used for unknown indication

REACTIONS (10)
  - Blood pressure increased [Unknown]
  - Paraesthesia oral [Recovered/Resolved]
  - Hypoaesthesia oral [Recovered/Resolved]
  - Hypoaesthesia [Recovering/Resolving]
  - Hypertension [Not Recovered/Not Resolved]
  - Heart rate decreased [Unknown]
  - Blood pressure diastolic decreased [Unknown]
  - Blood pressure diastolic abnormal [Unknown]
  - Hypersensitivity [Unknown]
  - Blood pressure systolic increased [Unknown]

NARRATIVE: CASE EVENT DATE: 20161212
